FAERS Safety Report 9151362 (Version 1)
Quarter: 2013Q1

REPORT INFORMATION
  Report Type: Report from Study
  Country: FR (occurrence: FR)
  Receive Date: 20130308
  Receipt Date: 20130308
  Transmission Date: 20140127
  Serious: Yes (Death, Hospitalization)
  Sender: FDA-Public Use
  Company Number: FR-ROCHE-775604

PATIENT
  Age: 83 Year
  Sex: Male

DRUGS (11)
  1. RITUXIMAB [Suspect]
     Indication: B-CELL LYMPHOMA
     Dosage: INDUCTION THERAPY (8 CYCLES)
     Route: 042
     Dates: start: 20071212, end: 20100526
  2. RITUXIMAB [Suspect]
     Dosage: MAINTAINANCE THERAPY. FREQUENCY: PER CYCLE (8 CYCLES)
     Route: 042
     Dates: start: 20080901, end: 20110111
  3. ADRIBLASTINE [Concomitant]
     Route: 065
  4. VP-16 [Concomitant]
     Route: 065
  5. ENDOXAN [Concomitant]
     Route: 065
  6. LASILIX [Concomitant]
     Indication: RENAL FAILURE CHRONIC
     Route: 048
  7. KARDEGIC [Concomitant]
     Route: 048
  8. FLUINDIONE [Concomitant]
     Dosage: INIDICATION REPORTED:INFARCT PREVENTION
     Route: 048
  9. INEXIUM [Concomitant]
     Indication: GASTROOESOPHAGEAL REFLUX DISEASE
     Route: 048
  10. PREDNISONE [Concomitant]
     Route: 065
     Dates: start: 20071212
  11. PREVISCAN [Concomitant]

REACTIONS (5)
  - Disease progression [Fatal]
  - General physical condition abnormal [Unknown]
  - Chest pain [Unknown]
  - Inguinal hernia repair [Unknown]
  - Gastroenteritis [Unknown]
